FAERS Safety Report 5466138-5 (Version None)
Quarter: 2007Q3

REPORT INFORMATION
  Report Type: 
  Country: None (occurrence: None)
  Receive Date: 20070924
  Receipt Date: 20070914
  Transmission Date: 20080115
  Serious: Yes (Death, Hospitalization)
  Sender: FDA-Public Use
  Company Number: JP-AMGEN-US215510

PATIENT
  Sex: Female
  Weight: 33 kg

DRUGS (12)
  1. ENBREL [Suspect]
     Indication: RHEUMATOID ARTHRITIS
     Route: 058
     Dates: start: 20050517, end: 20050708
  2. ENBREL [Suspect]
     Route: 058
     Dates: start: 20060214
  3. THYRADIN [Suspect]
     Indication: HYPOTHYROIDISM
     Dosage: 0.5 DF/DAY
     Route: 048
     Dates: start: 20051217
  4. PREDONINE [Suspect]
     Indication: INFLAMMATION
     Route: 048
     Dates: start: 20031125, end: 20060501
  5. PREDONINE [Suspect]
     Dosage: UNKNOWN
  6. MEDROL [Suspect]
     Indication: INFLAMMATION
     Route: 048
     Dates: start: 20040826, end: 20060501
  7. MEDROL [Suspect]
     Dosage: UNKNOWN
  8. LANSOPRAZOLE [Concomitant]
     Indication: REFLUX OESOPHAGITIS
     Route: 048
     Dates: start: 20050827
  9. BIOFERMIN [Concomitant]
     Route: 048
     Dates: start: 20060312
  10. BIOFERMIN [Concomitant]
     Route: 058
     Dates: start: 20060214
  11. SELBEX [Concomitant]
     Indication: GASTRITIS
     Route: 048
     Dates: start: 20060210
  12. LOXONIN [Concomitant]
     Indication: INFLAMMATION
     Route: 048
     Dates: start: 20060210

REACTIONS (1)
  - THALAMUS HAEMORRHAGE [None]
